FAERS Safety Report 16343211 (Version 8)
Quarter: 2021Q1

REPORT INFORMATION
  Report Type: Report from Study
  Country: CA (occurrence: CA)
  Receive Date: 20190522
  Receipt Date: 20210105
  Transmission Date: 20210419
  Serious: Yes (Hospitalization, Other)
  Sender: FDA-Public Use
  Company Number: PHHY2015CA160607

PATIENT
  Age: 51 Year
  Sex: Male

DRUGS (8)
  1. SANDOSTATIN [Suspect]
     Active Substance: OCTREOTIDE ACETATE
     Dosage: 200 UG, (5 DAYS PRE?OPERATION)
     Route: 058
     Dates: start: 20160102, end: 20160106
  2. SANDOSTATIN [Suspect]
     Active Substance: OCTREOTIDE ACETATE
     Dosage: UNK,(7 DAYS TWICE DAILY POST?OPERATION)
     Route: 058
     Dates: end: 20190513
  3. SANDOSTATIN LAR DEPOT [Suspect]
     Active Substance: OCTREOTIDE ACETATE
     Dosage: 60 MG, QMO
     Route: 030
  4. SANDOSTATIN [Suspect]
     Active Substance: OCTREOTIDE ACETATE
     Indication: NEUROENDOCRINE TUMOUR
     Dosage: 100 UG, BID (TO END 1 WEEK POST 1ST LAR)
     Route: 058
     Dates: start: 20151031
  5. SANDOSTATIN [Suspect]
     Active Substance: OCTREOTIDE ACETATE
     Dosage: 200 UG, QMO
     Route: 058
     Dates: start: 20151203
  6. SANDOSTATIN LAR DEPOT [Suspect]
     Active Substance: OCTREOTIDE ACETATE
  7. SANDOSTATIN [Suspect]
     Active Substance: OCTREOTIDE ACETATE
     Dosage: 200 UG, BID (7 DAYS POST?OPERATION)
     Route: 058
     Dates: start: 20160108, end: 20160114
  8. SANDOSTATIN LAR DEPOT [Suspect]
     Active Substance: OCTREOTIDE ACETATE
     Indication: NEUROENDOCRINE TUMOUR
     Dosage: 30 MG, QMO (EVERY 4 WEEKS)
     Route: 030
     Dates: start: 20151203

REACTIONS (27)
  - Wheezing [Unknown]
  - Musculoskeletal pain [Unknown]
  - Pancreatic neuroendocrine tumour [Unknown]
  - Malignant neoplasm progression [Unknown]
  - Mental disorder [Unknown]
  - Dyspnoea [Recovered/Resolved]
  - Scratch [Unknown]
  - Mucosal disorder [Unknown]
  - Insomnia [Unknown]
  - Sepsis [Unknown]
  - Lyme disease [Unknown]
  - Diverticulum [Unknown]
  - Blood pressure increased [Unknown]
  - Dyspraxia [Unknown]
  - Nasopharyngitis [Recovered/Resolved]
  - Fatigue [Unknown]
  - Inappropriate schedule of product administration [Unknown]
  - Procedural nausea [Unknown]
  - Chest pain [Recovered/Resolved]
  - Chest discomfort [Unknown]
  - Paraesthesia [Unknown]
  - Back pain [Recovering/Resolving]
  - Asthenia [Unknown]
  - Abdominal pain [Recovering/Resolving]
  - Hepatic neoplasm [Unknown]
  - Pulmonary mass [Unknown]
  - Dizziness [Unknown]

NARRATIVE: CASE EVENT DATE: 20151203
